FAERS Safety Report 6710206-4 (Version None)
Quarter: 2010Q2

REPORT INFORMATION
  Report Type: 
  Country: None (occurrence: None)
  Receive Date: 20100430
  Receipt Date: 20100419
  Transmission Date: 20101027
  Serious: Yes (Hospitalization)
  Sender: FDA-Public Use
  Company Number: 2010AL002333

PATIENT
  Age: 59 Year
  Sex: Female
  Weight: 87.2267 kg

DRUGS (9)
  1. OXYCODONE HCL [Suspect]
     Indication: PAIN
     Dosage: 15 MG; PRN; PO
     Route: 048
     Dates: start: 20090125
  2. SUNITIB MALATE [Concomitant]
  3. OXYCONTIN [Concomitant]
  4. RITALIN [Concomitant]
  5. CITALOPRAM HYDROBROMIDE [Concomitant]
  6. CALCITRIOL [Concomitant]
  7. NORVASC [Concomitant]
  8. PREVACID [Concomitant]
  9. CALCIUM CITRATE [Concomitant]

REACTIONS (1)
  - MENTAL STATUS CHANGES [None]
